FAERS Safety Report 7653236-0 (Version None)
Quarter: 2011Q3

REPORT INFORMATION
  Report Type: 
  Country: None (occurrence: None)
  Receive Date: 20110802
  Receipt Date: 20110802
  Transmission Date: 20111222
  Serious: Yes (Other)
  Sender: FDA-Public Use
  Company Number: None

PATIENT
  Age: 87 Year
  Sex: Male
  Weight: 68.0396 kg

DRUGS (1)
  1. CLARITHROMYCIN [Suspect]
     Indication: COUGH
     Dosage: 500ML 7 DAYS
     Dates: start: 20110201

REACTIONS (2)
  - AGEUSIA [None]
  - DYSGEUSIA [None]
